FAERS Safety Report 5457067-1 (Version None)
Quarter: 2007Q3

REPORT INFORMATION
  Report Type: 
  Country: None (occurrence: None)
  Receive Date: 20070918
  Receipt Date: 20061219
  Transmission Date: 20080115
  Serious: Yes (Other)
  Sender: FDA-Public Use
  Company Number: US-ASTRAZENECA-2006UW28269

PATIENT
  Age: 36 Year
  Sex: Female

DRUGS (10)
  1. SEROQUEL [Suspect]
     Indication: BIPOLAR DISORDER
     Dosage: 600 MG AT NIGHT, 100 MG DURING THE DAY
     Route: 048
     Dates: start: 20060501
  2. SEROQUEL [Suspect]
     Indication: ANXIETY
     Dosage: 600 MG AT NIGHT, 100 MG DURING THE DAY
     Route: 048
     Dates: start: 20060501
  3. SEROQUEL [Suspect]
     Indication: DEPRESSION
     Dosage: 600 MG AT NIGHT, 100 MG DURING THE DAY
     Route: 048
     Dates: start: 20060501
  4. NAPROXEN [Concomitant]
  5. EFFEXOR XR [Concomitant]
  6. DARVON [Concomitant]
  7. FUROSEMIDE [Concomitant]
  8. POTASSIUM CHLORIDE [Concomitant]
  9. AMBIEN [Concomitant]
  10. PROAIR HFA [Concomitant]

REACTIONS (7)
  - ARTHRALGIA [None]
  - BACK PAIN [None]
  - BLOOD GLUCOSE INCREASED [None]
  - DYSPNOEA [None]
  - HEPATIC ENZYME INCREASED [None]
  - HYPOTHYROIDISM [None]
  - NAUSEA [None]
